FAERS Safety Report 24186656 (Version 1)
Quarter: 2024Q3

REPORT INFORMATION
  Report Type: Report from Study
  Country: US (occurrence: None)
  Receive Date: 20240808
  Receipt Date: 20240808
  Transmission Date: 20241017
  Serious: Yes (Hospitalization)
  Sender: ASTRAZENECA
  Company Number: 2023A085879

PATIENT
  Sex: Female

DRUGS (1)
  1. DALIRESP [Suspect]
     Active Substance: ROFLUMILAST
     Dosage: UNKNOWN DOSAGE IN UNKNOWN FREQUENCY

REACTIONS (3)
  - Illness [Unknown]
  - Incorrect dose administered [Unknown]
  - Product dose omission issue [Unknown]
